FAERS Safety Report 7607445-7 (Version None)
Quarter: 2011Q3

REPORT INFORMATION
  Report Type: 
  Country: None (occurrence: None)
  Receive Date: 20110713
  Receipt Date: 20110630
  Transmission Date: 20111222
  Serious: Yes (Life-Threatening, Hospitalization, Other)
  Sender: FDA-Public Use
  Company Number: DE-GENENTECH-314179

PATIENT
  Sex: Male

DRUGS (11)
  1. BLINDED RANIBIZUMAB [Suspect]
     Dosage: UNK ML, UNK
     Route: 031
     Dates: start: 20110131
  2. PLACEBO [Suspect]
     Indication: DIABETIC RETINAL OEDEMA
     Dosage: 0.5 ML, UNK
     Route: 031
     Dates: start: 20091203
  3. BLINDED RANIBIZUMAB [Suspect]
     Dosage: UNK
  4. BERLINSULIN H [Concomitant]
     Indication: PRODUCT USED FOR UNKNOWN INDICATION
  5. DICLAC [Concomitant]
     Indication: PRODUCT USED FOR UNKNOWN INDICATION
  6. BLINDED RANIBIZUMAB [Suspect]
     Indication: DIABETIC RETINAL OEDEMA
     Dosage: 0.5 ML, UNK
     Route: 031
     Dates: start: 20091203
  7. PANTOZOL (BELGIUM) [Concomitant]
     Indication: PRODUCT USED FOR UNKNOWN INDICATION
  8. GELONIDA [Concomitant]
     Indication: PRODUCT USED FOR UNKNOWN INDICATION
  9. PROTAPHANE [Concomitant]
     Indication: PRODUCT USED FOR UNKNOWN INDICATION
  10. PLACEBO [Suspect]
     Dosage: UNK ML, UNK
     Route: 031
     Dates: start: 20110131
  11. PLACEBO [Suspect]
     Dosage: UNK

REACTIONS (2)
  - CARDIAC FAILURE [None]
  - MYOCARDIAL INFARCTION [None]
